FAERS Safety Report 21746771 (Version 1)
Quarter: 2022Q4

REPORT INFORMATION
  Report Type: Spontaneous
  Country: NO (occurrence: NO)
  Receive Date: 20221219
  Receipt Date: 20221219
  Transmission Date: 20230113
  Serious: Yes (Hospitalization, Other)
  Sender: FDA-Public Use
  Company Number: None

PATIENT
  Age: 87 Year
  Sex: Male

DRUGS (7)
  1. ELIQUIS [Suspect]
     Active Substance: APIXABAN
     Indication: Thrombosis prophylaxis
     Dosage: CONTINUED USE OF MEDICINAL PRODUCT
  2. VAXIGRIPTETRA [Suspect]
     Active Substance: INFLUENZA VIRUS VACCINE QUADRIVALENT TYPE A+B
     Indication: Immunisation
     Dosage: DOSE NO. IN SERIES: 1 ?VACCINATION SITE: LEFTARM
     Dates: start: 20221123
  3. COMIRNATY [Suspect]
     Active Substance: TOZINAMERAN
     Indication: Immunisation
     Dosage: DOSE NO. IN SERIES: 4 ?VACCINATION SITE: RIGHTARM?DOSGE FORM: INJEKSJONSVAESKE, DISPERSJON
     Dates: start: 20221124
  4. METOPROLOL [Concomitant]
     Active Substance: METOPROLOL
     Indication: Blood pressure increased
     Dosage: 2 TABLETTER MORGEN, 1 TABLETT KVELD?CONTINUED USE OF MEDICINAL PRODUCT
  5. FENAZON-KOFFEIN [Concomitant]
     Indication: Pain
     Dosage: UKJENT CONTINUED USE OF MEDICINAL PRODUCT?STRENGTH: FENAZON- 500 MILLIGRAM; KOFFEIN- 100 MILLIGRAM
  6. CANDESARTAN [Concomitant]
     Active Substance: CANDESARTAN
     Indication: Blood pressure increased
     Dosage: 1 TABLETT MORGEN?CONTINUED USE OF MEDICINAL PRODUCT
  7. ATORVASTATIN CALCIUM [Concomitant]
     Active Substance: ATORVASTATIN CALCIUM
     Indication: Blood cholesterol increased
     Dosage: 1 TABLETT KVELD?CONTINUED USE OF MEDICINAL PRODUCT

REACTIONS (2)
  - Renal failure [Not Recovered/Not Resolved]
  - Disorientation [Unknown]
